FAERS Safety Report 7162632-X (Version None)
Quarter: 2010Q4

REPORT INFORMATION
  Report Type: 
  Country: None (occurrence: None)
  Receive Date: 20101215
  Receipt Date: 20091214
  Transmission Date: 20110411
  Serious: Yes (Hospitalization, Other)
  Sender: FDA-Public Use
  Company Number: US-PFIZER INC-2009293208

PATIENT
  Sex: Female
  Weight: 95.238 kg

DRUGS (3)
  1. LYRICA [Suspect]
     Indication: FIBROMYALGIA
     Dosage: UNK
     Route: 048
     Dates: start: 20061101
  2. NORCO [Concomitant]
     Dosage: UNK
  3. AMBIEN [Concomitant]
     Dosage: UNK

REACTIONS (36)
  - AMNESIA [None]
  - ANGIOEDEMA [None]
  - ANORGASMIA [None]
  - ANXIETY [None]
  - BALANCE DISORDER [None]
  - BLOOD PRESSURE INCREASED [None]
  - CATATONIA [None]
  - CHEST DISCOMFORT [None]
  - CHEST PAIN [None]
  - CONSTIPATION [None]
  - COORDINATION ABNORMAL [None]
  - DEHYDRATION [None]
  - DEPRESSION [None]
  - DIARRHOEA [None]
  - DISORIENTATION [None]
  - DIZZINESS [None]
  - DRY EYE [None]
  - DYSARTHRIA [None]
  - EPISTAXIS [None]
  - FALL [None]
  - FEELING DRUNK [None]
  - GAIT DISTURBANCE [None]
  - JOINT SPRAIN [None]
  - LIBIDO DECREASED [None]
  - MEMORY IMPAIRMENT [None]
  - OEDEMA PERIPHERAL [None]
  - PALPITATIONS [None]
  - PAPILLOMA [None]
  - RESPIRATORY DISORDER [None]
  - SINUSITIS [None]
  - SOMNOLENCE [None]
  - SUICIDAL IDEATION [None]
  - TACHYCARDIA [None]
  - VISION BLURRED [None]
  - WEIGHT DECREASED [None]
  - WEIGHT INCREASED [None]
